FAERS Safety Report 5754530-0 (Version None)
Quarter: 2008Q2

REPORT INFORMATION
  Report Type: 
  Country: None (occurrence: None)
  Receive Date: 20080530
  Receipt Date: 20080519
  Transmission Date: 20081010
  Serious: Yes (Other)
  Sender: FDA-Public Use
  Company Number: NL-PFIZER INC-2008037740

PATIENT
  Sex: Male
  Weight: 94 kg

DRUGS (5)
  1. LYRICA [Suspect]
     Indication: NEURALGIA
     Route: 048
  2. INSULIN [Concomitant]
  3. LIPITOR [Concomitant]
  4. HUMALOG [Concomitant]
     Route: 058
  5. CRESTOR [Concomitant]
     Route: 048
     Dates: start: 20060101

REACTIONS (3)
  - DYSURIA [None]
  - POOR QUALITY SLEEP [None]
  - VISION BLURRED [None]
